FAERS Safety Report 25013491 (Version 1)
Quarter: 2025Q1

REPORT INFORMATION
  Report Type: Spontaneous
  Country: FR (occurrence: FR)
  Receive Date: 20250226
  Receipt Date: 20250226
  Transmission Date: 20250408
  Serious: Yes (Hospitalization, Other)
  Sender: CHEPLAPHARM
  Company Number: None

PATIENT
  Age: 74 Year
  Sex: Male
  Weight: 57.299 kg

DRUGS (5)
  1. HYDROXYUREA [Suspect]
     Active Substance: HYDROXYUREA
     Indication: Essential thrombocythaemia
     Dosage: 1 PER DAY MONDAY TO FRIDAY, 2 PER DAY SATURDAY AND SUNDAY
     Route: 048
     Dates: start: 20230315, end: 20241227
  2. RAMIPRIL [Suspect]
     Active Substance: RAMIPRIL
     Indication: Product used for unknown indication
     Dosage: 1-0-0?DAILY DOSE: 10 MILLIGRAM
     Route: 048
     Dates: start: 2021, end: 20241210
  3. HYDROCHLOROTHIAZIDE [Suspect]
     Active Substance: HYDROCHLOROTHIAZIDE
     Indication: Product used for unknown indication
     Dosage: 1-0-0?DAILY DOSE: 25 MILLIGRAM
     Route: 048
     Dates: start: 2021
  4. NICARDIPINE HYDROCHLORIDE [Concomitant]
     Active Substance: NICARDIPINE HYDROCHLORIDE
     Indication: Product used for unknown indication
     Dosage: 1-0-1, EXTENDED-RELEASE CAPSULE?DAILY DOSE: 100 MILLIGRAM
     Route: 048
     Dates: start: 2019
  5. KARDEGIC [Concomitant]
     Active Substance: ASPIRIN DL-LYSINE
     Indication: Essential thrombocythaemia
     Dosage: POWDER FOR ORAL SOLUTION IN SACHET?DAILY DOSE: 75 MILLIGRAM
     Route: 048
     Dates: start: 20230315

REACTIONS (6)
  - Tubulointerstitial nephritis [Recovering/Resolving]
  - Acute kidney injury [Unknown]
  - Myelosuppression [Recovering/Resolving]
  - Asthenia [Unknown]
  - Dyspnoea [Unknown]
  - Hypomagnesaemia [Unknown]

NARRATIVE: CASE EVENT DATE: 20240801
